FAERS Safety Report 17436118 (Version 1)
Quarter: 2020Q1

REPORT INFORMATION
  Report Type: Spontaneous
  Country: CN (occurrence: CN)
  Receive Date: 20200219
  Receipt Date: 20200219
  Transmission Date: 20200409
  Serious: Yes (Other)
  Sender: FDA-Public Use
  Company Number: CN-BAXTER-2020BAX003635

PATIENT
  Age: 50 Year
  Sex: Female
  Weight: 48.5 kg

DRUGS (13)
  1. AI SU [Suspect]
     Active Substance: DOCETAXEL
     Indication: BREAST CANCER FEMALE
     Dosage: AI SU + NS, 1-4 CHEMOTHERAPIES
     Route: 041
  2. JIN YOULI XIN RUI BAI [Concomitant]
     Indication: PRODUCT USED FOR UNKNOWN INDICATION
     Route: 058
     Dates: start: 20191126
  3. ENDOXAN [Suspect]
     Active Substance: CYCLOPHOSPHAMIDE
     Indication: BREAST CANCER FEMALE
     Dosage: ENDOXAN + NS, 1-4 CHEMOTHERAPIES
     Route: 042
  4. 0.9% SODIUM CHLORIDE INJECTION [Suspect]
     Active Substance: SODIUM CHLORIDE
     Dosage: ENDOXAN + NS, DOSE REINTRODUCED
     Route: 042
  5. 0.9% SODIUM CHLORIDE INJECTION [Suspect]
     Active Substance: SODIUM CHLORIDE
     Dosage: AI SU + NS, DOSE REINTRODUCED
     Route: 041
  6. ENDOXAN [Suspect]
     Active Substance: CYCLOPHOSPHAMIDE
     Dosage: ENDOXAN + NS, DOSE REINTRODUCED
     Route: 042
  7. AI SU [Suspect]
     Active Substance: DOCETAXEL
     Dosage: AI SU 110 MG + NS 250 ML, 5TH CHEMOTHERAPY
     Route: 041
     Dates: start: 20191125, end: 20191125
  8. 0.9% SODIUM CHLORIDE INJECTION [Suspect]
     Active Substance: SODIUM CHLORIDE
     Dosage: ENDOXAN 880 MG + NS 45 ML, 5TH CHEMOTHERAPY
     Route: 042
     Dates: start: 20191125, end: 20191125
  9. 0.9% SODIUM CHLORIDE INJECTION [Suspect]
     Active Substance: SODIUM CHLORIDE
     Dosage: AI SU + NS, 1-4 CHEMOTHERAPIES
     Route: 041
  10. AI SU [Suspect]
     Active Substance: DOCETAXEL
     Dosage: AI SU + NS, DOSE REINTRODUCED
     Route: 041
  11. ENDOXAN [Suspect]
     Active Substance: CYCLOPHOSPHAMIDE
     Dosage: ENDOXAN 880 MG + NS 45 ML, 5TH CHEMOTHERAPY
     Route: 042
     Dates: start: 20191125, end: 20191125
  12. 0.9% SODIUM CHLORIDE INJECTION [Suspect]
     Active Substance: SODIUM CHLORIDE
     Dosage: AI SU 110 MG + NS 250 ML, 5TH CHEMOTHERAPY
     Route: 041
     Dates: start: 20191125, end: 20191125
  13. 0.9% SODIUM CHLORIDE INJECTION [Suspect]
     Active Substance: SODIUM CHLORIDE
     Indication: MEDICATION DILUTION
     Dosage: ENDOXAN + NS, 1-4 CHEMOTHERAPIES
     Route: 042

REACTIONS (1)
  - Agranulocytosis [Recovered/Resolved]

NARRATIVE: CASE EVENT DATE: 20191202
